FAERS Safety Report 6678147-9 (Version None)
Quarter: 2010Q2

REPORT INFORMATION
  Report Type: 
  Country: None (occurrence: None)
  Receive Date: 20100409
  Receipt Date: 20100409
  Transmission Date: 20101027
  Serious: No
  Sender: FDA-Public Use
  Company Number: None

PATIENT
  Age: 52 Year
  Sex: Female
  Weight: 80.8 kg

DRUGS (2)
  1. METOCLOPRAMIDE [Suspect]
     Indication: NAUSEA
     Dosage: 10 MG Q 6 HOURS IV
     Route: 042
     Dates: start: 20100406, end: 20100407
  2. ERLOTINIB [Suspect]
     Dosage: ERLOTINIB 150 MG DAILY PO
     Route: 048

REACTIONS (4)
  - ABDOMINAL PAIN UPPER [None]
  - HEADACHE [None]
  - NAUSEA [None]
  - TARDIVE DYSKINESIA [None]
